FAERS Safety Report 4798891-8 (Version None)
Quarter: 2005Q4

REPORT INFORMATION
  Report Type: 
  Country: None (occurrence: None)
  Receive Date: 20051014
  Receipt Date: 20051005
  Transmission Date: 20060501
  Serious: Yes (Other)
  Sender: FDA-Public Use
  Company Number: 2005AP05276

PATIENT
  Age: 56 Year
  Sex: Male
  Weight: 73 kg

DRUGS (7)
  1. PROPOFOL [Suspect]
     Indication: INDUCTION OF ANAESTHESIA
     Route: 042
  2. FENTANYL CITRATE [Concomitant]
     Indication: INDUCTION OF ANAESTHESIA
  3. VECURONIUM [Concomitant]
     Indication: INDUCTION OF ANAESTHESIA
  4. NITROUS OXIDE W/ OXYGEN [Concomitant]
     Indication: MAINTENANCE OF ANAESTHESIA
     Route: 055
  5. OXYGEN [Concomitant]
     Indication: MAINTENANCE OF ANAESTHESIA
     Route: 055
  6. SEVOFLURANE [Concomitant]
     Indication: MAINTENANCE OF ANAESTHESIA
     Route: 055
  7. CONTINUOUS EPIDURAL ANAESTHESIA [Concomitant]
     Indication: MAINTENANCE OF ANAESTHESIA
     Route: 008

REACTIONS (3)
  - ARTERIOSPASM CORONARY [None]
  - BLOOD PRESSURE DECREASED [None]
  - ELECTROCARDIOGRAM ST SEGMENT ELEVATION [None]
